FAERS Safety Report 7331523-3 (Version None)
Quarter: 2011Q1

REPORT INFORMATION
  Report Type: 
  Country: None (occurrence: None)
  Receive Date: 20110304
  Receipt Date: 20110218
  Transmission Date: 20110831
  Serious: Yes (Hospitalization)
  Sender: FDA-Public Use
  Company Number: JP-ASTRAZENECA-2010SE23853

PATIENT
  Age: 72 Year
  Sex: Female
  Weight: 53 kg

DRUGS (1)
  1. ECARD COMBINATION HD [Suspect]
     Indication: HYPERTENSION
     Route: 048
     Dates: start: 20091007, end: 20100311

REACTIONS (3)
  - DRUG ERUPTION [None]
  - FALL [None]
  - COMPRESSION FRACTURE [None]
